FAERS Safety Report 6498015-5 (Version None)
Quarter: 2009Q4

REPORT INFORMATION
  Report Type: 
  Country: None (occurrence: None)
  Receive Date: 20091215
  Receipt Date: 20091203
  Transmission Date: 20100525
  Serious: No
  Sender: FDA-Public Use
  Company Number: PHHY2009FR47605

PATIENT
  Sex: Female
  Weight: 73 kg

DRUGS (2)
  1. ZOLEDRONATE T29581++BM [Suspect]
     Dosage: 4 MG, QMO
     Route: 042
     Dates: start: 20090501
  2. FASLODEX [Concomitant]
     Indication: BREAST CANCER METASTATIC
     Dosage: 250 MG, QMO
     Dates: start: 20090401

REACTIONS (3)
  - FATIGUE [None]
  - PAIN IN EXTREMITY [None]
  - PYREXIA [None]
